FAERS Safety Report 18312173 (Version 2)
Quarter: 2020Q4

REPORT INFORMATION
  Report Type: Spontaneous
  Country: GB (occurrence: GB)
  Receive Date: 20200925
  Receipt Date: 20201006
  Transmission Date: 20210113
  Serious: Yes (Other)
  Sender: FDA-Public Use
  Company Number: GB-TEVA-2020-GB-1831712

PATIENT
  Sex: Female

DRUGS (1)
  1. DOXAZOSIN MESILATE [Suspect]
     Active Substance: DOXAZOSIN MESYLATE
     Route: 065

REACTIONS (11)
  - Headache [Unknown]
  - Heart rate increased [Unknown]
  - Urinary incontinence [Unknown]
  - Incontinence [Unknown]
  - Fatigue [Unknown]
  - Anxiety [Unknown]
  - Blood pressure abnormal [Unknown]
  - Increased appetite [Unknown]
  - Anger [Unknown]
  - Renal failure [Unknown]
  - Diarrhoea [Unknown]
